FAERS Safety Report 8202977-5 (Version None)
Quarter: 2012Q1

REPORT INFORMATION
  Report Type: 
  Country: None (occurrence: None)
  Receive Date: 20120312
  Receipt Date: 20120228
  Transmission Date: 20120608
  Serious: Yes (Other)
  Sender: FDA-Public Use
  Company Number: JP-UCBSA-052668

PATIENT
  Age: 9 Year

DRUGS (1)
  1. XYZAL [Suspect]
     Indication: URTICARIA
     Route: 048
     Dates: start: 20120120, end: 20120203

REACTIONS (3)
  - EXTRAPYRAMIDAL DISORDER [None]
  - TREMOR [None]
  - INSOMNIA [None]
